FAERS Safety Report 25120145 (Version 1)
Quarter: 2025Q1

REPORT INFORMATION
  Report Type: Spontaneous
  Country: FR (occurrence: FR)
  Receive Date: 20250325
  Receipt Date: 20250325
  Transmission Date: 20250409
  Serious: Yes (Other)
  Sender: MYLAN
  Company Number: None

PATIENT
  Age: 56 Year
  Sex: Male

DRUGS (44)
  1. LYRICA [Suspect]
     Active Substance: PREGABALIN
     Indication: Product used for unknown indication
  2. LYRICA [Suspect]
     Active Substance: PREGABALIN
     Route: 048
  3. LYRICA [Suspect]
     Active Substance: PREGABALIN
     Route: 048
  4. LYRICA [Suspect]
     Active Substance: PREGABALIN
  5. PAROXETINE [Suspect]
     Active Substance: PAROXETINE
     Indication: Product used for unknown indication
  6. PAROXETINE [Suspect]
     Active Substance: PAROXETINE
     Route: 048
  7. PAROXETINE [Suspect]
     Active Substance: PAROXETINE
     Route: 048
  8. PAROXETINE [Suspect]
     Active Substance: PAROXETINE
  9. BROMAZEPAM [Suspect]
     Active Substance: BROMAZEPAM
     Indication: Product used for unknown indication
  10. BROMAZEPAM [Suspect]
     Active Substance: BROMAZEPAM
     Route: 048
  11. BROMAZEPAM [Suspect]
     Active Substance: BROMAZEPAM
     Route: 048
  12. BROMAZEPAM [Suspect]
     Active Substance: BROMAZEPAM
  13. CANNABINOL [Suspect]
     Active Substance: CANNABINOL
     Indication: Product used for unknown indication
     Dates: start: 20250102, end: 20250102
  14. CANNABINOL [Suspect]
     Active Substance: CANNABINOL
     Route: 048
     Dates: start: 20250102, end: 20250102
  15. CANNABINOL [Suspect]
     Active Substance: CANNABINOL
     Route: 048
     Dates: start: 20250102, end: 20250102
  16. CANNABINOL [Suspect]
     Active Substance: CANNABINOL
     Dates: start: 20250102, end: 20250102
  17. CODEINE [Suspect]
     Active Substance: CODEINE
     Indication: Product used for unknown indication
  18. CODEINE [Suspect]
     Active Substance: CODEINE
     Route: 048
  19. CODEINE [Suspect]
     Active Substance: CODEINE
     Route: 048
  20. CODEINE [Suspect]
     Active Substance: CODEINE
  21. CANNABIDIOL [Suspect]
     Active Substance: CANNABIDIOL
     Indication: Product used for unknown indication
     Dates: start: 20250102, end: 20250102
  22. CANNABIDIOL [Suspect]
     Active Substance: CANNABIDIOL
     Route: 048
     Dates: start: 20250102, end: 20250102
  23. CANNABIDIOL [Suspect]
     Active Substance: CANNABIDIOL
     Route: 048
     Dates: start: 20250102, end: 20250102
  24. CANNABIDIOL [Suspect]
     Active Substance: CANNABIDIOL
     Dates: start: 20250102, end: 20250102
  25. FENOFIBRATE [Concomitant]
     Active Substance: FENOFIBRATE
  26. FENOFIBRATE [Concomitant]
     Active Substance: FENOFIBRATE
     Route: 065
  27. FENOFIBRATE [Concomitant]
     Active Substance: FENOFIBRATE
     Route: 065
  28. FENOFIBRATE [Concomitant]
     Active Substance: FENOFIBRATE
  29. AMLODIPINE [Concomitant]
     Active Substance: AMLODIPINE BESYLATE
  30. AMLODIPINE [Concomitant]
     Active Substance: AMLODIPINE BESYLATE
     Route: 065
  31. AMLODIPINE [Concomitant]
     Active Substance: AMLODIPINE BESYLATE
     Route: 065
  32. AMLODIPINE [Concomitant]
     Active Substance: AMLODIPINE BESYLATE
  33. CANDESARTAN [Concomitant]
     Active Substance: CANDESARTAN
  34. CANDESARTAN [Concomitant]
     Active Substance: CANDESARTAN
     Route: 065
  35. CANDESARTAN [Concomitant]
     Active Substance: CANDESARTAN
     Route: 065
  36. CANDESARTAN [Concomitant]
     Active Substance: CANDESARTAN
  37. ACETAMINOPHEN\CODEINE PHOSPHATE [Concomitant]
     Active Substance: ACETAMINOPHEN\CODEINE PHOSPHATE
  38. ACETAMINOPHEN\CODEINE PHOSPHATE [Concomitant]
     Active Substance: ACETAMINOPHEN\CODEINE PHOSPHATE
     Route: 065
  39. ACETAMINOPHEN\CODEINE PHOSPHATE [Concomitant]
     Active Substance: ACETAMINOPHEN\CODEINE PHOSPHATE
     Route: 065
  40. ACETAMINOPHEN\CODEINE PHOSPHATE [Concomitant]
     Active Substance: ACETAMINOPHEN\CODEINE PHOSPHATE
  41. MALARONE [Concomitant]
     Active Substance: ATOVAQUONE\PROGUANIL HYDROCHLORIDE
  42. MALARONE [Concomitant]
     Active Substance: ATOVAQUONE\PROGUANIL HYDROCHLORIDE
     Route: 065
  43. MALARONE [Concomitant]
     Active Substance: ATOVAQUONE\PROGUANIL HYDROCHLORIDE
     Route: 065
  44. MALARONE [Concomitant]
     Active Substance: ATOVAQUONE\PROGUANIL HYDROCHLORIDE

REACTIONS (6)
  - Toxicity to various agents [Recovered/Resolved]
  - Loss of consciousness [Recovered/Resolved]
  - Malaise [Recovered/Resolved]
  - Muscle spasms [Recovered/Resolved]
  - Somnolence [Recovered/Resolved]
  - Drug abuse [Not Recovered/Not Resolved]

NARRATIVE: CASE EVENT DATE: 20250102
